FAERS Safety Report 7271139-0 (Version None)
Quarter: 2011Q1

REPORT INFORMATION
  Report Type: 
  Country: None (occurrence: None)
  Receive Date: 20110202
  Receipt Date: 20110126
  Transmission Date: 20110831
  Serious: Yes (Hospitalization)
  Sender: FDA-Public Use
  Company Number: US-RB-021325-11

PATIENT
  Age: 27 Year
  Sex: Female

DRUGS (1)
  1. SUBUTEX [Suspect]
     Indication: DRUG DEPENDENCE
     Route: 060

REACTIONS (2)
  - DEEP VEIN THROMBOSIS [None]
  - DRUG EXPOSURE DURING PREGNANCY [None]
